FAERS Safety Report 6197942-6 (Version None)
Quarter: 2009Q2

REPORT INFORMATION
  Report Type: 
  Country: None (occurrence: None)
  Receive Date: 20090521
  Receipt Date: 20090513
  Transmission Date: 20091009
  Serious: Yes (Other)
  Sender: FDA-Public Use
  Company Number: B0537977A

PATIENT
  Sex: Female

DRUGS (9)
  1. FLUTICASONE PROPIONATE [Suspect]
     Indication: ASTHMA
     Dosage: 2PUFF TWICE PER DAY
     Route: 055
     Dates: start: 20080729
  2. SERETIDE [Suspect]
     Indication: ASTHMA
     Dosage: 1PUFF TWICE PER DAY
     Route: 055
     Dates: start: 20080201
  3. ASPIRIN [Suspect]
     Indication: ANTICOAGULANT THERAPY
     Dosage: 75MG PER DAY
     Route: 048
  4. UNKNOWN DRUG [Suspect]
     Indication: DRUG USE FOR UNKNOWN INDICATION
     Dosage: 1.25MG PER DAY
     Route: 048
  5. UNKNOWN DRUG [Suspect]
     Dosage: 10MG PER DAY
     Route: 048
  6. LANSOPRAZOLE [Suspect]
     Indication: GASTRIC ULCER
     Dosage: 30MG PER DAY
     Route: 048
  7. UNKNOWN DRUG [Suspect]
     Dosage: 40MG PER DAY
     Route: 048
  8. PERSANTINE [Suspect]
     Indication: ANTICOAGULANT THERAPY
     Dosage: 200MG TWICE PER DAY
     Route: 048
  9. WARFARIN SODIUM [Suspect]
     Indication: ANTICOAGULANT THERAPY
     Dosage: 1MG PER DAY
     Route: 048

REACTIONS (6)
  - ASTHMA [None]
  - COUGH [None]
  - DRUG INEFFECTIVE [None]
  - DYSPNOEA [None]
  - DYSPNOEA EXERTIONAL [None]
  - LOWER RESPIRATORY TRACT INFECTION [None]
